FAERS Safety Report 21012181 (Version 1)
Quarter: 2022Q2

REPORT INFORMATION
  Report Type: Spontaneous
  Country: JP (occurrence: JP)
  Receive Date: 20220627
  Receipt Date: 20220627
  Transmission Date: 20220721
  Serious: Yes (Other)
  Sender: FDA-Public Use
  Company Number: JP-TAKEDA-2022TUS042765

PATIENT

DRUGS (1)
  1. INTUNIV [Suspect]
     Active Substance: GUANFACINE HYDROCHLORIDE
     Indication: Attention deficit hyperactivity disorder
     Dosage: UNK
     Route: 048

REACTIONS (14)
  - Electrocardiogram QT prolonged [Unknown]
  - Bradycardia [Unknown]
  - Hallucination, auditory [Unknown]
  - Hypomania [Unknown]
  - Blood pressure decreased [Unknown]
  - Somnolence [Unknown]
  - Malaise [Unknown]
  - Thirst [Unknown]
  - Dizziness [Unknown]
  - Headache [Unknown]
  - Anxiety [Unknown]
  - Irritability [Unknown]
  - Pruritus [Unknown]
  - Crime [Unknown]
